FAERS Safety Report 9290855 (Version 1)
Quarter: 2013Q2

REPORT INFORMATION
  Report Type: Report from Study
  Country: US (occurrence: US)
  Receive Date: 20130515
  Receipt Date: 20130515
  Transmission Date: 20140414
  Serious: Yes (Hospitalization)
  Sender: FDA-Public Use
  Company Number: US-ASTRAZENECA-2008UW03167

PATIENT
  Age: 24274 Day
  Sex: Male
  Weight: 101 kg

DRUGS (9)
  1. ATACAND HCT [Suspect]
     Indication: HYPERTENSION
     Route: 048
     Dates: start: 20070413
  2. ATACAND HCT [Suspect]
     Indication: HYPERTENSION
     Route: 048
     Dates: start: 20070413
  3. ASPIRIN [Concomitant]
  4. PLAVIX [Concomitant]
  5. GLIMEPIRIDE [Concomitant]
  6. IMDUR [Concomitant]
  7. TOPROL XL [Concomitant]
     Route: 048
  8. PROVIGIL [Concomitant]
  9. LASIX [Concomitant]

REACTIONS (1)
  - Syncope [Recovered/Resolved]
